FAERS Safety Report 19268442 (Version 1)
Quarter: 2021Q2

REPORT INFORMATION
  Report Type: Spontaneous
  Country: US (occurrence: US)
  Receive Date: 20210517
  Receipt Date: 20210517
  Transmission Date: 20210717
  Serious: No
  Sender: FDA-Public Use
  Company Number: None

PATIENT
  Age: 64 Year
  Sex: Female

DRUGS (5)
  1. ESCITALOPRAM [Concomitant]
     Active Substance: ESCITALOPRAM OXALATE
  2. LISINOPRIL. [Concomitant]
     Active Substance: LISINOPRIL
  3. VITAMIN D2 [Concomitant]
     Active Substance: ERGOCALCIFEROL
  4. SUTENT [Suspect]
     Active Substance: SUNITINIB MALATE
     Indication: NEOPLASM
     Route: 048
     Dates: start: 20210420, end: 202105
  5. ONDANSETRON [Concomitant]
     Active Substance: ONDANSETRON

REACTIONS (7)
  - Arthralgia [None]
  - Skin disorder [None]
  - Pruritus [None]
  - Rash [None]
  - Pain of skin [None]
  - Pain in extremity [None]
  - Therapy interrupted [None]

NARRATIVE: CASE EVENT DATE: 202105
